FAERS Safety Report 7597727-X (Version None)
Quarter: 2011Q3

REPORT INFORMATION
  Report Type: 
  Country: None (occurrence: None)
  Receive Date: 20110708
  Receipt Date: 20110629
  Transmission Date: 20111222
  Serious: Yes (Hospitalization)
  Sender: FDA-Public Use
  Company Number: JP-GLAXOSMITHKLINE-B0629708A

PATIENT
  Sex: Female
  Weight: 48 kg

DRUGS (4)
  1. PYDOXAL [Concomitant]
     Indication: HYPOAESTHESIA
     Route: 048
  2. DIPOTASSIUM GLYCYRRHIZINATE [Concomitant]
     Indication: SKIN DISORDER
     Route: 061
  3. TYKERB [Suspect]
     Indication: INFLAMMATORY CARCINOMA OF THE BREAST
     Dosage: 1250MG PER DAY
     Route: 048
     Dates: start: 20090623, end: 20100302
  4. XELODA [Suspect]
     Indication: INFLAMMATORY CARCINOMA OF THE BREAST
     Dosage: 3000MG PER DAY
     Route: 048
     Dates: start: 20090624, end: 20100302

REACTIONS (2)
  - DIARRHOEA [None]
  - INFECTION [None]
